FAERS Safety Report 11042798 (Version 7)
Quarter: 2016Q3

REPORT INFORMATION
  Report Type: Report from Study
  Country: BR (occurrence: BR)
  Receive Date: 20150417
  Receipt Date: 20160729
  Transmission Date: 20161109
  Serious: Yes (Hospitalization, Other)
  Sender: FDA-Public Use
  Company Number: BR-ROCHE-1429388

PATIENT
  Age: 58 Year
  Sex: Female
  Weight: 47 kg

DRUGS (13)
  1. ENALAPRIL MALEATE. [Concomitant]
     Active Substance: ENALAPRIL MALEATE
     Indication: HYPERTENSION
  2. LASIX [Concomitant]
     Active Substance: FUROSEMIDE
     Indication: PULMONARY OEDEMA
  3. DEFLAZACORT [Concomitant]
     Active Substance: DEFLAZACORT
     Indication: RHEUMATOID ARTHRITIS
  4. ARAVA [Suspect]
     Active Substance: LEFLUNOMIDE
     Indication: PRODUCT USED FOR UNKNOWN INDICATION
     Route: 065
     Dates: end: 201405
  5. MESALAZINE [Concomitant]
     Active Substance: MESALAMINE
  6. ACTEMRA [Suspect]
     Active Substance: TOCILIZUMAB
     Indication: RHEUMATOID ARTHRITIS
     Route: 042
     Dates: start: 20130101
  7. MOTILIUM [Concomitant]
     Active Substance: DOMPERIDONE
  8. MAREVAN [Concomitant]
     Active Substance: WARFARIN SODIUM
     Indication: ANTICOAGULANT THERAPY
  9. DRAMAMINE [Concomitant]
     Active Substance: DIMENHYDRINATE
     Route: 042
  10. LOSARTAN POTASSIUM. [Concomitant]
     Active Substance: LOSARTAN POTASSIUM
     Indication: HYPERTENSION
  11. PANTOPRAZOLE [Concomitant]
     Active Substance: PANTOPRAZOLE SODIUM
  12. MAALOX (ALUMINUM HYDROXIDE/MAGNESIUM HYDROXIDE) [Concomitant]
  13. SELOZOK [Concomitant]
     Active Substance: METOPROLOL SUCCINATE

REACTIONS (21)
  - Enterocolitis haemorrhagic [Unknown]
  - Very low density lipoprotein increased [Recovered/Resolved]
  - Pain in extremity [Recovered/Resolved]
  - Low density lipoprotein increased [Recovered/Resolved]
  - Hyponatraemia [Recovered/Resolved]
  - Blood cholesterol increased [Recovered/Resolved]
  - Dizziness [Recovered/Resolved]
  - Gastrointestinal inflammation [Unknown]
  - Colitis ischaemic [Recovered/Resolved]
  - Ischaemia [Unknown]
  - Pulmonary embolism [Recovering/Resolving]
  - Headache [Recovered/Resolved]
  - Sciatica [Recovering/Resolving]
  - Cardiac failure [Recovering/Resolving]
  - Oropharyngeal pain [Recovered/Resolved]
  - Colitis [Recovering/Resolving]
  - Dyspnoea [Recovering/Resolving]
  - Blood triglycerides abnormal [Recovered/Resolved]
  - Fatigue [Not Recovered/Not Resolved]
  - Vomiting [Recovered/Resolved]
  - Nasopharyngitis [Recovered/Resolved]

NARRATIVE: CASE EVENT DATE: 201312
